FAERS Safety Report 13731785 (Version 4)
Quarter: 2017Q3

REPORT INFORMATION
  Report Type: Spontaneous
  Country: US (occurrence: US)
  Receive Date: 20170707
  Receipt Date: 20170918
  Transmission Date: 20171127
  Serious: No
  Sender: FDA-Public Use
  Company Number: US-PFIZER INC-2017286106

PATIENT
  Age: 62 Year
  Sex: Female

DRUGS (1)
  1. XELJANZ XR [Suspect]
     Active Substance: TOFACITINIB CITRATE
     Dosage: 11 MG, UNK

REACTIONS (22)
  - Joint range of motion decreased [Unknown]
  - Alopecia [Unknown]
  - Pain in extremity [Unknown]
  - Joint crepitation [Unknown]
  - Oedema peripheral [Unknown]
  - Musculoskeletal stiffness [Unknown]
  - Skin plaque [Unknown]
  - Musculoskeletal pain [Unknown]
  - Erythema [Unknown]
  - Dry skin [Unknown]
  - Weight increased [Unknown]
  - Neck pain [Unknown]
  - Back pain [Unknown]
  - Ecchymosis [Unknown]
  - Skin hyperpigmentation [Unknown]
  - Varicose vein [Unknown]
  - Dyspnoea exertional [Unknown]
  - Blood pressure increased [Unknown]
  - Arthralgia [Unknown]
  - Joint effusion [Unknown]
  - Psoriasis [Unknown]
  - Red blood cell sedimentation rate increased [Unknown]
